FAERS Safety Report 8517145-7 (Version None)
Quarter: 2012Q3

REPORT INFORMATION
  Report Type: 
  Country: None (occurrence: None)
  Receive Date: 20120706
  Receipt Date: 20120626
  Transmission Date: 20120928
  Serious: Yes (Hospitalization, Other)
  Sender: FDA-Public Use
  Company Number: AUR-APL-2012-02834

PATIENT
  Age: 70 Year
  Sex: Female

DRUGS (1)
  1. CEFTRIAXONE SODIUM [Suspect]
     Indication: TOOTHACHE
     Dosage: 1 UNIT DOSE/TOTAL
     Dates: start: 20120425, end: 20120425

REACTIONS (1)
  - ENTERITIS [None]
